FAERS Safety Report 6608063-X (Version None)
Quarter: 2010Q1

REPORT INFORMATION
  Report Type: 
  Country: None (occurrence: None)
  Receive Date: 20100301
  Receipt Date: 20100222
  Transmission Date: 20100710
  Serious: Yes (Death, Other)
  Sender: FDA-Public Use
  Company Number: CHPA2010US03811

PATIENT
  Age: 41 Year
  Sex: Female

DRUGS (8)
  1. ACETAMINOPHEN (PARACETAMOL),DIPHENHYDRAMINE HYDROCHLORIDE (NCH) [Suspect]
  2. ACETYLSALICYLIC ACID SRT [Suspect]
  3. OXYMORPHONE [Suspect]
  4. VENLAFAXINE [Suspect]
  5. QUETIAPINE [Suspect]
  6. ZOLPIDEM [Suspect]
  7. HYDROXYZINE [Suspect]
  8. CLONAZEPAM [Suspect]

REACTIONS (6)
  - ACIDOSIS [None]
  - COMPLETED SUICIDE [None]
  - CONTINUOUS HAEMODIAFILTRATION [None]
  - ENDOTRACHEAL INTUBATION [None]
  - PANCREATITIS [None]
  - PNEUMONIA ASPIRATION [None]
